FAERS Safety Report 7705337-6 (Version None)
Quarter: 2011Q3

REPORT INFORMATION
  Report Type: 
  Country: None (occurrence: None)
  Receive Date: 20110824
  Receipt Date: 20110816
  Transmission Date: 20111222
  Serious: Yes (Other)
  Sender: FDA-Public Use
  Company Number: BR-JNJFOC-20110807541

PATIENT
  Age: 57 Year
  Sex: Male

DRUGS (2)
  1. REMICADE [Suspect]
     Indication: RHEUMATOID ARTHRITIS
     Route: 065
     Dates: start: 20100928
  2. PREDNISOLONE [Concomitant]
     Indication: ADRENOCORTICAL STEROID THERAPY
     Route: 065
     Dates: start: 20000101

REACTIONS (3)
  - ARTERITIS [None]
  - PNEUMONIA [None]
  - THYROIDITIS [None]
